FAERS Safety Report 6184628-7 (Version None)
Quarter: 2009Q2

REPORT INFORMATION
  Report Type: 
  Country: None (occurrence: None)
  Receive Date: 20090508
  Receipt Date: 20090504
  Transmission Date: 20091009
  Serious: Yes (Hospitalization)
  Sender: FDA-Public Use
  Company Number: US-BAYER-200919936NA

PATIENT
  Age: 21 Year
  Sex: Female

DRUGS (4)
  1. YAZ FLEX [Suspect]
     Route: 048
     Dates: start: 20080411, end: 20090413
  2. LASIX [Concomitant]
     Indication: JOINT SWELLING
     Route: 048
     Dates: start: 20070501
  3. ULTRAM [Concomitant]
     Indication: ARTHRALGIA
     Route: 048
     Dates: start: 20060601
  4. NAPROXEN [Concomitant]
     Indication: ABDOMINAL PAIN
     Route: 048
     Dates: start: 20080621, end: 20080629

REACTIONS (2)
  - ABDOMINAL PAIN LOWER [None]
  - CHOLECYSTITIS ACUTE [None]
